FAERS Safety Report 6863908-3 (Version None)
Quarter: 2010Q3

REPORT INFORMATION
  Report Type: 
  Country: None (occurrence: None)
  Receive Date: 20100721
  Receipt Date: 20080308
  Transmission Date: 20110219
  Serious: No
  Sender: FDA-Public Use
  Company Number: US-PFIZER INC-2008023439

PATIENT
  Sex: Male
  Weight: 81.8 kg

DRUGS (9)
  1. CHANTIX [Suspect]
     Indication: SMOKING CESSATION THERAPY
     Dates: start: 20070101
  2. FENTANYL [Concomitant]
  3. LIPITOR [Concomitant]
  4. TRIAMTERENE [Concomitant]
  5. AMLODIPINE [Concomitant]
  6. EFFEXOR [Concomitant]
  7. CLONAZEPAM [Concomitant]
  8. LEVOTHYROXINE SODIUM [Concomitant]
  9. ACETYLSALICYLIC ACID [Concomitant]

REACTIONS (2)
  - INCREASED APPETITE [None]
  - WEIGHT INCREASED [None]
